FAERS Safety Report 25810459 (Version 3)
Quarter: 2025Q4

REPORT INFORMATION
  Report Type: Report from Study
  Country: US (occurrence: US)
  Receive Date: 20250917
  Receipt Date: 20251111
  Transmission Date: 20260117
  Serious: Yes (Hospitalization)
  Sender: ABBVIE
  Company Number: US-ABBVIE-6461061

PATIENT
  Age: 71 Year
  Sex: Male

DRUGS (3)
  1. VYALEV [Suspect]
     Active Substance: FOSCARBIDOPA\FOSLEVODOPA
     Indication: Product used for unknown indication
     Dosage: FIRST ADMIN DATE: 2025
     Route: 058
  2. VYALEV [Suspect]
     Active Substance: FOSCARBIDOPA\FOSLEVODOPA
     Route: 058
     Dates: start: 20250601, end: 20250615
  3. SINEMET [Concomitant]
     Active Substance: CARBIDOPA\LEVODOPA
     Indication: Product used for unknown indication
     Dates: start: 2025

REACTIONS (6)
  - Infection [Recovered/Resolved]
  - Catheter site erythema [Recovering/Resolving]
  - Catheter site swelling [Recovering/Resolving]
  - Catheter site mass [Recovering/Resolving]
  - Catheter site pain [Recovering/Resolving]
  - Catheter site haemorrhage [Recovering/Resolving]

NARRATIVE: CASE EVENT DATE: 20250101
